FAERS Safety Report 5745881-4 (Version None)
Quarter: 2008Q2

REPORT INFORMATION
  Report Type: 
  Country: None (occurrence: None)
  Receive Date: 20080521
  Receipt Date: 20080511
  Transmission Date: 20081010
  Serious: Yes (Hospitalization, Other)
  Sender: FDA-Public Use
  Company Number: US-AMGEN-QUU278632

PATIENT
  Sex: Female

DRUGS (2)
  1. ENBREL [Suspect]
     Indication: RHEUMATOID ARTHRITIS
     Route: 058
     Dates: start: 20021201
  2. METHOTREXATE [Concomitant]
     Route: 048

REACTIONS (31)
  - BACK INJURY [None]
  - BACK PAIN [None]
  - BACTERIAL INFECTION [None]
  - BRONCHITIS [None]
  - CARDIAC DISORDER [None]
  - CHOLECYSTECTOMY [None]
  - CONTUSION [None]
  - DEHYDRATION [None]
  - EAR PAIN [None]
  - EXCORIATION [None]
  - FALL [None]
  - GAIT DISTURBANCE [None]
  - GASTRIC INFECTION [None]
  - GASTRIC ULCER [None]
  - INFLAMMATION [None]
  - INFLUENZA [None]
  - INTERVERTEBRAL DISC DEGENERATION [None]
  - INTERVERTEBRAL DISC PROTRUSION [None]
  - JOINT DISLOCATION [None]
  - JOINT INSTABILITY [None]
  - JOINT RANGE OF MOTION DECREASED [None]
  - LACERATION [None]
  - MIGRAINE [None]
  - OESOPHAGEAL STENOSIS [None]
  - PAIN [None]
  - PNEUMONIA [None]
  - POST PROCEDURAL PNEUMONIA [None]
  - RHEUMATOID ARTHRITIS [None]
  - SINUSITIS [None]
  - STEROID THERAPY [None]
  - SWELLING [None]
